FAERS Safety Report 23531613 (Version 1)
Quarter: 2024Q1

REPORT INFORMATION
  Report Type: Spontaneous
  Country: CN (occurrence: CN)
  Receive Date: 20240216
  Receipt Date: 20240216
  Transmission Date: 20240410
  Serious: Yes (Hospitalization, Other)
  Sender: FDA-Public Use
  Company Number: CN-009507513-2402CHN003879

PATIENT
  Age: 48 Year
  Sex: Male
  Weight: 50 kg

DRUGS (4)
  1. CANCIDAS [Suspect]
     Active Substance: CASPOFUNGIN ACETATE
     Indication: Anti-infective therapy
     Dosage: 70 MG, ONCE DAILY
     Route: 041
     Dates: start: 20240131, end: 20240131
  2. CANCIDAS [Suspect]
     Active Substance: CASPOFUNGIN ACETATE
     Dosage: 50 MG, ONCE DAILY
     Route: 041
     Dates: start: 20240201
  3. SODIUM CHLORIDE [Suspect]
     Active Substance: SODIUM CHLORIDE
     Indication: Medication dilution
     Dosage: 100 ML, QD
     Route: 041
     Dates: start: 20240131, end: 20240131
  4. SODIUM CHLORIDE [Concomitant]
     Active Substance: SODIUM CHLORIDE
     Indication: Medication dilution
     Dosage: 250 ML, QD (ALSO REPORTED AS 3 TIMES A DAY)
     Route: 041
     Dates: start: 20240131, end: 20240131

REACTIONS (3)
  - Hepatic function abnormal [Recovering/Resolving]
  - Myelosuppression [Unknown]
  - Fungal infection [Unknown]

NARRATIVE: CASE EVENT DATE: 20240203
